FAERS Safety Report 13335072 (Version 5)
Quarter: 2017Q3

REPORT INFORMATION
  Report Type: Report from Study
  Country: None (occurrence: TR)
  Receive Date: 20170315
  Receipt Date: 20170915
  Transmission Date: 20171127
  Serious: Yes (Hospitalization, Other)
  Sender: FDA-Public Use
  Company Number: TR-ABBVIE-17K-161-1901510-00

PATIENT
  Sex: Female
  Weight: 65 kg

DRUGS (3)
  1. SALOFALK [Concomitant]
     Active Substance: MESALAMINE
     Indication: CROHN^S DISEASE
     Dosage: 3X2
     Route: 048
     Dates: start: 2015
  2. COVERSYL [Concomitant]
     Active Substance: PERINDOPRIL
     Indication: HYPERTENSION
     Route: 048
     Dates: start: 2007
  3. HUMIRA [Suspect]
     Active Substance: ADALIMUMAB
     Indication: CROHN^S DISEASE
     Route: 058
     Dates: start: 20140311, end: 20170209

REACTIONS (9)
  - Anaemia [Recovered/Resolved]
  - Skin infection [Recovered/Resolved]
  - Hyperglycaemia [Recovered/Resolved]
  - Injection site swelling [Recovered/Resolved]
  - Crohn^s disease [Unknown]
  - Weight decreased [Recovered/Resolved]
  - Joint swelling [Recovered/Resolved]
  - Skin oedema [Recovered/Resolved]
  - Crohn^s disease [Not Recovered/Not Resolved]

NARRATIVE: CASE EVENT DATE: 2015
